FAERS Safety Report 18520150 (Version 1)
Quarter: 2020Q4

REPORT INFORMATION
  Report Type: Report from Study
  Country: None (occurrence: US)
  Receive Date: 20201118
  Receipt Date: 20201118
  Transmission Date: 20210114
  Serious: Yes (Other)
  Sender: FDA-Public Use
  Company Number: US-ABBVIE-20K-163-3506873-00

PATIENT
  Sex: Female

DRUGS (3)
  1. HUMIRA [Suspect]
     Active Substance: ADALIMUMAB
     Route: 058
     Dates: start: 20200710
  2. LEXAPRO [Concomitant]
     Active Substance: ESCITALOPRAM OXALATE
     Indication: PRODUCT USED FOR UNKNOWN INDICATION
  3. HUMIRA [Suspect]
     Active Substance: ADALIMUMAB
     Indication: RHEUMATOID ARTHRITIS
     Route: 058
     Dates: start: 20200131, end: 20200612

REACTIONS (9)
  - Rotator cuff syndrome [Unknown]
  - Injection site papule [Recovered/Resolved]
  - Infection [Unknown]
  - Injection site pruritus [Recovered/Resolved]
  - Loss of personal independence in daily activities [Recovering/Resolving]
  - Depression [Recovering/Resolving]
  - Arthralgia [Recovered/Resolved]
  - Procedural pain [Unknown]
  - Anxiety [Recovering/Resolving]

NARRATIVE: CASE EVENT DATE: 2020
